FAERS Safety Report 24115818 (Version 1)
Quarter: 2024Q3

REPORT INFORMATION
  Report Type: Spontaneous
  Country: US (occurrence: None)
  Receive Date: 20240721
  Receipt Date: 20240721
  Transmission Date: 20241017
  Serious: No
  Sender: ASTRAZENECA
  Company Number: 2024A164460

PATIENT
  Sex: Female

DRUGS (2)
  1. IMFINZI [Suspect]
     Active Substance: DURVALUMAB
     Dosage: 500
  2. IMFINZI [Suspect]
     Active Substance: DURVALUMAB
     Dosage: 120

REACTIONS (1)
  - Injury associated with device [Unknown]
